FAERS Safety Report 12676113 (Version 1)
Quarter: 2016Q3

REPORT INFORMATION
  Report Type: Report from Study
  Country: BR (occurrence: BR)
  Receive Date: 20160823
  Receipt Date: 20160823
  Transmission Date: 20161109
  Serious: Yes (Other)
  Sender: FDA-Public Use
  Company Number: PHHY2016BR114507

PATIENT
  Age: 48 Year
  Sex: Female
  Weight: 55 kg

DRUGS (2)
  1. ACLASTA [Suspect]
     Active Substance: ZOLEDRONIC ACID
     Indication: OSTEOPOROSIS
     Dosage: 5 MG, Q12MO
     Route: 042
  2. ZOMETA [Suspect]
     Active Substance: ZOLEDRONIC ACID
     Indication: BONE DISORDER
     Dosage: UNK UNK, QMO
     Route: 065
     Dates: start: 201601

REACTIONS (6)
  - Body surface area decreased [Unknown]
  - Gait disturbance [Unknown]
  - Spinal fracture [Unknown]
  - Spinal pain [Recovering/Resolving]
  - Neuropathy peripheral [Recovering/Resolving]
  - Muscle atrophy [Recovering/Resolving]

NARRATIVE: CASE EVENT DATE: 201605
